FAERS Safety Report 11448519 (Version 2)
Quarter: 2015Q4

REPORT INFORMATION
  Report Type: Spontaneous
  Country: US (occurrence: US)
  Receive Date: 20150902
  Receipt Date: 20151001
  Transmission Date: 20160304
  Serious: Yes (Hospitalization, Other)
  Sender: FDA-Public Use
  Company Number: US-GLAXOSMITHKLINE-US2015124793

PATIENT
  Age: 46 Year
  Sex: Male
  Weight: 122 kg

DRUGS (4)
  1. PHENOBARBITAL. [Concomitant]
     Active Substance: PHENOBARBITAL
  2. DILANTIN [Suspect]
     Active Substance: PHENYTOIN
     Indication: COMPLEX PARTIAL SEIZURES
     Dosage: 130 MG, QID
     Dates: start: 19671019
  3. CALCIUM [Concomitant]
     Active Substance: CALCIUM
  4. LAMICTAL XR [Suspect]
     Active Substance: LAMOTRIGINE
     Indication: COMPLEX PARTIAL SEIZURES
     Dosage: 400 MG, BID
     Route: 048
     Dates: end: 2009

REACTIONS (4)
  - Adverse drug reaction [Unknown]
  - Cardiac valve rupture [Unknown]
  - Heart valve replacement [Recovered/Resolved]
  - Rash [Not Recovered/Not Resolved]

NARRATIVE: CASE EVENT DATE: 20090921
